FAERS Safety Report 16899734 (Version 1)
Quarter: 2019Q4

REPORT INFORMATION
  Report Type: Report from Study
  Country: None (occurrence: TR)
  Receive Date: 20191009
  Receipt Date: 20191009
  Transmission Date: 20200122
  Serious: Yes (Hospitalization)
  Sender: FDA-Public Use
  Company Number: TR-ABBVIE-19K-161-2951936-00

PATIENT
  Age: 53 Year
  Sex: Female
  Weight: 74 kg

DRUGS (4)
  1. PK MERZ [Concomitant]
     Active Substance: AMANTADINE SULFATE
     Indication: PARKINSON^S DISEASE
     Route: 048
     Dates: start: 2015
  2. DUODOPA [Suspect]
     Active Substance: CARBIDOPA\LEVODOPA
     Indication: PARKINSON^S DISEASE
     Dosage: MORNING DOSE (ML): 4.40 CONTINUOUS DOSE (ML): 2.40 EXTRA DOSE (ML): 1.20
     Route: 050
     Dates: start: 20170323
  3. REQUIP [Concomitant]
     Active Substance: ROPINIROLE HYDROCHLORIDE
     Indication: PARKINSON^S DISEASE
     Route: 048
     Dates: start: 2016
  4. LEPONEX [Concomitant]
     Active Substance: CLOZAPINE
     Indication: DEPRESSION
     Route: 048
     Dates: start: 2015

REACTIONS (3)
  - Tremor [Not Recovered/Not Resolved]
  - Hypoaesthesia [Not Recovered/Not Resolved]
  - Joint dislocation [Recovered/Resolved]

NARRATIVE: CASE EVENT DATE: 20190714
